FAERS Safety Report 21965718 (Version 1)
Quarter: 2023Q1

REPORT INFORMATION
  Report Type: Spontaneous
  Country: US (occurrence: US)
  Receive Date: 20230208
  Receipt Date: 20230208
  Transmission Date: 20230417
  Serious: No
  Sender: FDA-Public Use
  Company Number: US-TEVA-2023-US-2850018

PATIENT
  Age: 74 Year
  Sex: Female

DRUGS (1)
  1. TAMOXIFEN [Suspect]
     Active Substance: TAMOXIFEN
     Indication: Product used for unknown indication
     Dosage: STRENGTH: 20 MG
     Route: 065
     Dates: end: 20221214

REACTIONS (3)
  - Anxiety [Unknown]
  - Agitation [Unknown]
  - Depression [Unknown]

NARRATIVE: CASE EVENT DATE: 20221201
